FAERS Safety Report 10391105 (Version 1)
Quarter: 2014Q3

REPORT INFORMATION
  Report Type: Spontaneous
  Country: US (occurrence: US)
  Receive Date: 20140818
  Receipt Date: 20140818
  Transmission Date: 20150326
  Serious: Yes (Other)
  Sender: FDA-Public Use
  Company Number: US-GLAXOSMITHKLINE-A1085347A

PATIENT
  Age: 34 Year
  Sex: Female

DRUGS (2)
  1. ZANTAC [Suspect]
     Active Substance: RANITIDINE HYDROCHLORIDE
     Dosage: 150MG UNKNOWN
     Dates: start: 20100726
  2. LAMICTAL [Suspect]
     Active Substance: LAMOTRIGINE
     Indication: BRAIN INJURY
     Dates: start: 20100521

REACTIONS (3)
  - Crying [Unknown]
  - Malaise [Unknown]
  - Brain operation [Unknown]

NARRATIVE: CASE EVENT DATE: 20140810
